FAERS Safety Report 23509476 (Version 2)
Quarter: 2024Q1

REPORT INFORMATION
  Report Type: Spontaneous
  Country: FR (occurrence: FR)
  Receive Date: 20240210
  Receipt Date: 20240215
  Transmission Date: 20240409
  Serious: Yes (Other)
  Sender: FDA-Public Use
  Company Number: FR-ABBVIE-5624607

PATIENT
  Age: 71 Year
  Sex: Female

DRUGS (4)
  1. DIVALPROEX SODIUM [Suspect]
     Active Substance: DIVALPROEX SODIUM
     Indication: Medication error
     Route: 048
     Dates: start: 20230131, end: 20230131
  2. RISPERIDONE [Suspect]
     Active Substance: RISPERIDONE
     Indication: Medication error
     Route: 048
     Dates: start: 20230131, end: 20230131
  3. ATORVASTATIN [Suspect]
     Active Substance: ATORVASTATIN
     Indication: Medication error
     Route: 048
     Dates: start: 20230131, end: 20230131
  4. ARIPIPRAZOLE [Suspect]
     Active Substance: ARIPIPRAZOLE
     Indication: Medication error
     Route: 065
     Dates: start: 20230131, end: 20230131

REACTIONS (3)
  - Oxygen saturation decreased [Recovered/Resolved]
  - Vomiting [Recovered/Resolved]
  - Wrong patient received product [Unknown]

NARRATIVE: CASE EVENT DATE: 20230201
